FAERS Safety Report 10636977 (Version 1)
Quarter: 2014Q4

REPORT INFORMATION
  Report Type: Spontaneous
  Country: FR (occurrence: FR)
  Receive Date: 20141208
  Receipt Date: 20141208
  Transmission Date: 20150529
  Serious: Yes (Death, Hospitalization, Other)
  Sender: FDA-Public Use
  Company Number: FR-ASTRAZENECA-2014SE91984

PATIENT
  Age: 11 Year
  Sex: Male
  Weight: 72 kg

DRUGS (10)
  1. HYPNOVEL [Suspect]
     Active Substance: MIDAZOLAM\MIDAZOLAM HYDROCHLORIDE
     Route: 065
     Dates: start: 20141101, end: 20141101
  2. SUFENTANIL [Suspect]
     Active Substance: SUFENTANIL
     Indication: INDUCTION OF ANAESTHESIA
     Dosage: 15, ONCE
     Route: 042
     Dates: start: 20141101, end: 20141101
  3. TRACRIUM [Suspect]
     Active Substance: ATRACURIUM BESYLATE
     Indication: INDUCTION OF ANAESTHESIA
     Route: 042
     Dates: start: 20141101, end: 20141101
  4. SEVORANE [Suspect]
     Active Substance: SEVOFLURANE
     Route: 055
     Dates: start: 20141101, end: 20141101
  5. DIPRIVAN [Suspect]
     Active Substance: PROPOFOL
     Indication: INDUCTION OF ANAESTHESIA
     Route: 042
     Dates: start: 20141101, end: 20141101
  6. PERFALGAN [Suspect]
     Active Substance: ACETAMINOPHEN
     Indication: POSTOPERATIVE ANALGESIA
     Dosage: 10 MG/ML, 1 GRAM, ONCE
     Route: 042
     Dates: start: 20141101, end: 20141101
  7. OXYGENE [Suspect]
     Active Substance: OXYGEN
     Dosage: ONCE/SINGLE ADMINISTRATION
     Route: 055
     Dates: start: 20141101, end: 20141101
  8. PROTOXYDE D^AZOTE [Suspect]
     Active Substance: NITROUS OXIDE
     Route: 055
     Dates: start: 20141101, end: 20141101
  9. PROFENID [Suspect]
     Active Substance: KETOPROFEN
     Indication: POSTOPERATIVE ANALGESIA
     Route: 042
     Dates: start: 20141101, end: 20141101
  10. KETAMINE [Suspect]
     Active Substance: KETAMINE
     Route: 042
     Dates: start: 20141101, end: 20141101

REACTIONS (4)
  - Shock [Fatal]
  - Shock haemorrhagic [Fatal]
  - Multi-organ failure [Unknown]
  - Haemodynamic instability [None]

NARRATIVE: CASE EVENT DATE: 20141101
